FAERS Safety Report 20897467 (Version 2)
Quarter: 2022Q3

REPORT INFORMATION
  Report Type: Spontaneous
  Country: CA (occurrence: CA)
  Receive Date: 20220531
  Receipt Date: 20220712
  Transmission Date: 20221027
  Serious: Yes (Other)
  Sender: FDA-Public Use
  Company Number: CA-PFIZER INC-202200266146

PATIENT
  Age: 43 Year
  Sex: Female

DRUGS (3)
  1. XELJANZ [Suspect]
     Active Substance: TOFACITINIB CITRATE
     Indication: Colitis ulcerative
     Dosage: 10 MG, 2X/DAY, DISCONTINUED
     Route: 048
     Dates: start: 20220209
  2. PREGABALIN [Concomitant]
     Active Substance: PREGABALIN
     Dosage: 200 MG
  3. TYLENOL WITH CODEINE [Concomitant]
     Active Substance: ACETAMINOPHEN\CODEINE PHOSPHATE
     Dosage: UNK

REACTIONS (14)
  - Migraine [Not Recovered/Not Resolved]
  - Arthritis enteropathic [Unknown]
  - Drug ineffective [Unknown]
  - Nausea [Unknown]
  - Fungal infection [Unknown]
  - Tinea versicolour [Unknown]
  - Oral candidiasis [Unknown]
  - Blood triglycerides increased [Unknown]
  - Fatigue [Unknown]
  - Arthralgia [Unknown]
  - Abdominal pain [Unknown]
  - Defaecation urgency [Recovering/Resolving]
  - Flushing [Unknown]
  - Chills [Unknown]

NARRATIVE: CASE EVENT DATE: 20220201
